FAERS Safety Report 8982598 (Version 2)
Quarter: 2013Q1

REPORT INFORMATION
  Report Type: Spontaneous
  Country: US (occurrence: US)
  Receive Date: 20121221
  Receipt Date: 20130213
  Transmission Date: 20140127
  Serious: Yes (Hospitalization)
  Sender: FDA-Public Use
  Company Number: US-B.I. PHARMACEUTICALS,INC./RIDGEFIELD-2012-BI-03529BP

PATIENT
  Sex: Female

DRUGS (7)
  1. PRADAXA [Suspect]
     Indication: ATRIAL FIBRILLATION
     Dosage: 300 MG
     Route: 048
  2. ZANTAC 150 (RANITIDINE HYDROCHLORIDE) [Suspect]
  3. ATENOLOL [Concomitant]
     Indication: HYPERTENSION
  4. LEVOTHYROXINE [Concomitant]
     Indication: HYPOTHYROIDISM
  5. NIASPAN [Concomitant]
     Indication: BLOOD CHOLESTEROL INCREASED
  6. DIOVAN [Concomitant]
     Indication: HYPERTENSION
  7. DIGOXIN [Concomitant]
     Indication: HYPERTENSION

REACTIONS (4)
  - Myasthenia gravis [Unknown]
  - Posture abnormal [Unknown]
  - Dental caries [Unknown]
  - Dyspepsia [Unknown]
